FAERS Safety Report 26172595 (Version 1)
Quarter: 2025Q4

REPORT INFORMATION
  Report Type: Spontaneous
  Country: EU (occurrence: EU)
  Receive Date: 20251218
  Receipt Date: 20251218
  Transmission Date: 20260118
  Serious: Yes (Hospitalization, Other)
  Sender: AUROBINDO
  Company Number: EU-ABBVIE-6467258

PATIENT
  Age: 81 Year
  Sex: Male

DRUGS (22)
  1. AZACITIDINE [Suspect]
     Active Substance: AZACITIDINE
     Indication: Acute myeloid leukaemia
     Dosage: 75 MILLIGRAM, CYCLICAL (END OF CYCLE(7 DAYS))
     Route: 065
     Dates: start: 20250114, end: 20250123
  2. AZACITIDINE [Suspect]
     Active Substance: AZACITIDINE
     Dosage: 75 MILLIGRAM, CYCLICAL (END OF CYCLE(7 DAYS))
     Route: 065
     Dates: start: 20250304, end: 20250313
  3. AZACITIDINE [Suspect]
     Active Substance: AZACITIDINE
     Dosage: 75 MILLIGRAM, CYCLICAL (END OF CYCLE(7 DAYS))
     Route: 065
     Dates: start: 20250408, end: 20250417
  4. AZACITIDINE [Suspect]
     Active Substance: AZACITIDINE
     Dosage: 75 MILLIGRAM, CYCLICAL (END OF CYCLE(7 DAYS))
     Route: 065
     Dates: start: 20250513, end: 20250519
  5. AZACITIDINE [Suspect]
     Active Substance: AZACITIDINE
     Dosage: 75 MILLIGRAM, CYCLICAL (END OF CYCLE(7 DAYS))
     Route: 065
     Dates: start: 20250617, end: 20250623
  6. AZACITIDINE [Suspect]
     Active Substance: AZACITIDINE
     Dosage: 75 MILLIGRAM (DOSE INTERRUPTED)
     Route: 065
     Dates: start: 20250716, end: 20250718
  7. VENETOCLAX [Suspect]
     Active Substance: VENETOCLAX
     Indication: Acute myeloid leukaemia
     Dosage: 100 MILLIGRAM (RAMP- UP DOSE)
     Route: 061
     Dates: start: 20250114, end: 20250115
  8. VENETOCLAX [Suspect]
     Active Substance: VENETOCLAX
     Dosage: 200 MILLIGRAM (RAMP- UP DOSE)
     Route: 061
     Dates: start: 20250115, end: 20250119
  9. VENETOCLAX [Suspect]
     Active Substance: VENETOCLAX
     Dosage: 400 MILLIGRAM (RAMP- UP DOSE)
     Route: 061
     Dates: start: 20250120, end: 20250127
  10. VENETOCLAX [Suspect]
     Active Substance: VENETOCLAX
     Dosage: 400 MILLIGRAM DOSE INTERRUPTED
     Route: 061
     Dates: start: 20250408, end: 20250417
  11. VENETOCLAX [Suspect]
     Active Substance: VENETOCLAX
     Dosage: 400 MILLIGRAM (DOSE INTERRUPTED)
     Route: 061
     Dates: start: 20250513, end: 20250522
  12. VENETOCLAX [Suspect]
     Active Substance: VENETOCLAX
     Dosage: 400 MILLIGRAM (DOSE INTERRUPTED)
     Route: 061
     Dates: start: 20250617, end: 20250627
  13. VENETOCLAX [Suspect]
     Active Substance: VENETOCLAX
     Dosage: 400 MILLIGRAM
     Route: 061
     Dates: start: 20250716, end: 20250720
  14. VENETOCLAX [Suspect]
     Active Substance: VENETOCLAX
     Dosage: 400 MILLIGRAM (RAMP- UP DOSE)
     Route: 061
     Dates: start: 20250304, end: 20250313
  15. LEVOTHYROXINE SODIUM [Concomitant]
     Active Substance: LEVOTHYROXINE SODIUM
     Indication: Hypothyroidism
     Dosage: UNK
     Route: 061
  16. BETAMETHASONE [Concomitant]
     Active Substance: BETAMETHASONE
     Indication: Bronchitis chronic
     Dosage: UNK
  17. FORMOTEROL [Concomitant]
     Active Substance: FORMOTEROL
     Indication: Bronchitis chronic
     Dosage: UNK
  18. METFORMIN [Concomitant]
     Active Substance: METFORMIN HYDROCHLORIDE
     Indication: Diabetes mellitus
     Dosage: 850 MILLIGRAM
     Route: 061
  19. ASPIRIN [Concomitant]
     Active Substance: ASPIRIN
     Indication: Myocardial infarction
     Dosage: 100 MILLIGRAM, ONCE A DAY
     Route: 061
     Dates: start: 1995
  20. ACYCLOVIR [Concomitant]
     Active Substance: ACYCLOVIR
     Indication: Antiviral prophylaxis
     Dosage: 400 MILLIGRAM, 0.5 DAY
     Route: 061
  21. ALLOPURINOL [Concomitant]
     Active Substance: ALLOPURINOL
     Indication: Prophylaxis
     Dosage: 300 MILLIGRAM, ONCE A DAY
     Route: 061
     Dates: start: 20250114
  22. Augment [Concomitant]
     Indication: Conjunctival haemorrhage
     Dosage: 875 MILLIGRAM (0.5 DAY)
     Route: 061
     Dates: start: 20250122, end: 20250127

REACTIONS (2)
  - Neutropenia [Recovered/Resolved]
  - Appendicitis [Recovered/Resolved]

NARRATIVE: CASE EVENT DATE: 20250306
